FAERS Safety Report 6144894-0 (Version None)
Quarter: 2009Q2

REPORT INFORMATION
  Report Type: 
  Country: None (occurrence: None)
  Receive Date: 20090402
  Receipt Date: 20090402
  Transmission Date: 20091009
  Serious: Yes (Life-Threatening)
  Sender: FDA-Public Use
  Company Number: None

PATIENT
  Age: 27 Year
  Sex: Female
  Weight: 52.1637 kg

DRUGS (2)
  1. YASMIN [Suspect]
     Indication: MENSTRUATION IRREGULAR
     Dosage: 3MG/0.03 MG ONE DAILY 21 DAYS PO
     Route: 048
     Dates: start: 20050101, end: 20081225
  2. YAZ [Suspect]
     Indication: ACNE
     Dosage: 3MG/0.02MG ONE DAILY 21 DAYS PO
     Route: 048
     Dates: start: 20090201, end: 20090401

REACTIONS (11)
  - ANGER [None]
  - ANTISOCIAL BEHAVIOUR [None]
  - ANXIETY [None]
  - DEPRESSION [None]
  - DISTURBANCE IN ATTENTION [None]
  - FEELING ABNORMAL [None]
  - FEELINGS OF WORTHLESSNESS [None]
  - IMPULSIVE BEHAVIOUR [None]
  - PANIC ATTACK [None]
  - SUICIDAL IDEATION [None]
  - TEMPERATURE INTOLERANCE [None]
